FAERS Safety Report 8922645 (Version 2)
Quarter: 2012Q4

REPORT INFORMATION
  Report Type: Report from Study
  Country: BR (occurrence: BR)
  Receive Date: 20121123
  Receipt Date: 20121227
  Transmission Date: 20130627
  Serious: Yes (Other)
  Sender: FDA-Public Use
  Company Number: BR-ROCHE-1155635

PATIENT
  Sex: Female
  Weight: 75 kg

DRUGS (8)
  1. RITUXIMAB [Suspect]
     Indication: RHEUMATOID ARTHRITIS
     Route: 042
     Dates: start: 20090303, end: 20090317
  2. PREDNISONE [Concomitant]
     Indication: PAIN
  3. FOLIC ACID [Concomitant]
  4. SODIUM BICARBONATE [Concomitant]
  5. OMEPRAZOLE [Concomitant]
     Indication: ABDOMINAL PAIN UPPER
  6. PARACETAMOL [Concomitant]
     Indication: PAIN
  7. SULFAMETHAZINE [Concomitant]
     Route: 065
  8. HYDROXYCHLOROQUINE [Concomitant]
     Route: 065

REACTIONS (9)
  - Hypertension [Not Recovered/Not Resolved]
  - Foot fracture [Unknown]
  - Osteoporosis [Not Recovered/Not Resolved]
  - Bone pain [Not Recovered/Not Resolved]
  - Abdominal pain upper [Unknown]
  - Finger deformity [Unknown]
  - Arthralgia [Not Recovered/Not Resolved]
  - Pain [Not Recovered/Not Resolved]
  - Arthritis [Not Recovered/Not Resolved]
